FAERS Safety Report 5804234-0 (Version None)
Quarter: 2008Q3

REPORT INFORMATION
  Report Type: 
  Country: None (occurrence: None)
  Receive Date: 20080707
  Receipt Date: 20080619
  Transmission Date: 20090109
  Serious: Yes (Hospitalization, Other)
  Sender: FDA-Public Use
  Company Number: JPI-P-004006

PATIENT
  Age: 70 Year
  Sex: Female

DRUGS (3)
  1. LUVOX [Suspect]
     Indication: DEPRESSION
     Dosage: ORAL
     Route: 048
  2. DOSULEPIN HYDROCHLORIDE (DOSULEPIN HYDROCHLORIDE) [Suspect]
     Indication: DEPRESSION
     Dosage: ORAL
     Route: 048
  3. MIANSERIN (MIANSERIN) [Concomitant]

REACTIONS (14)
  - ANOREXIA [None]
  - BALANCE DISORDER [None]
  - DELIRIUM [None]
  - DELUSION [None]
  - DEPRESSION [None]
  - DISEASE RECURRENCE [None]
  - DIZZINESS [None]
  - DRUG INTERACTION [None]
  - FALL [None]
  - HALLUCINATION [None]
  - LAZINESS [None]
  - LOCALISED OEDEMA [None]
  - MOOD ALTERED [None]
  - NERVOUS SYSTEM DISORDER [None]
